FAERS Safety Report 7841613-4 (Version None)
Quarter: 2011Q4

REPORT INFORMATION
  Report Type: 
  Country: None (occurrence: None)
  Receive Date: 20111025
  Receipt Date: 20111018
  Transmission Date: 20120403
  Serious: Yes (Hospitalization)
  Sender: FDA-Public Use
  Company Number: SE-B.I. PHARMACEUTICALS,INC./RIDGEFIELD-2011-SW-00431SW

PATIENT
  Sex: Male

DRUGS (2)
  1. PERSANTIN [Suspect]
     Dosage: FORM: PROLONGED-RELEASE HARD
  2. WARFARIN SODIUM [Suspect]
     Indication: ATRIAL FIBRILLATION

REACTIONS (1)
  - HAEMATURIA [None]
